FAERS Safety Report 24459076 (Version 3)
Quarter: 2024Q4

REPORT INFORMATION
  Report Type: Report from Study
  Country: US (occurrence: US)
  Receive Date: 20241018
  Receipt Date: 20241213
  Transmission Date: 20250115
  Serious: Yes (Death, Other)
  Sender: TAKEDA
  Company Number: US-TAKEDA-2024TUS089642

PATIENT
  Sex: Female

DRUGS (13)
  1. PONATINIB [Suspect]
     Active Substance: PONATINIB
     Indication: Acute lymphocytic leukaemia
     Dosage: 30 MILLIGRAM, QD
  2. PONATINIB [Suspect]
     Active Substance: PONATINIB
     Indication: Acute myeloid leukaemia
     Dosage: 30 MILLIGRAM, QD
  3. PONATINIB [Suspect]
     Active Substance: PONATINIB
     Dosage: 30 MILLIGRAM, QD
  4. PEPCID [Concomitant]
     Active Substance: FAMOTIDINE
     Dosage: UNK
  5. LEVOFLOXACIN [Concomitant]
     Active Substance: LEVOFLOXACIN
     Dosage: UNK
  6. URSODIOL [Concomitant]
     Active Substance: URSODIOL
     Dosage: UNK
  7. ACYCLOVIR [Concomitant]
     Active Substance: ACYCLOVIR
     Dosage: UNK
  8. METFORMIN HYDROCHLORIDE [Concomitant]
     Active Substance: METFORMIN HYDROCHLORIDE
     Dosage: UNK
  9. FLUCONAZOLE [Concomitant]
     Active Substance: FLUCONAZOLE
     Dosage: UNK
  10. LEVOTHYROXINE SODIUM [Concomitant]
     Active Substance: LEVOTHYROXINE SODIUM
     Dosage: UNK
  11. LORATADINE [Concomitant]
     Active Substance: LORATADINE
     Indication: Allergy prophylaxis
     Dosage: UNK
  12. POTASSIUM [Concomitant]
     Active Substance: POTASSIUM
     Dosage: UNK
  13. BLINCYTO [Concomitant]
     Active Substance: BLINATUMOMAB
     Dosage: UNK

REACTIONS (2)
  - Death [Fatal]
  - Fatigue [Unknown]
